FAERS Safety Report 25895317 (Version 1)
Quarter: 2025Q4

REPORT INFORMATION
  Report Type: Spontaneous
  Country: IR (occurrence: IR)
  Receive Date: 20251008
  Receipt Date: 20251008
  Transmission Date: 20260117
  Serious: Yes (Death, Hospitalization, Other)
  Sender: ROCHE
  Company Number: IR-ROCHE-10000399292

PATIENT
  Age: 37 Year
  Sex: Female

DRUGS (5)
  1. ACTEMRA [Suspect]
     Active Substance: TOCILIZUMAB
     Indication: COVID-19 pneumonia
     Route: 065
  2. REMDESIVIR [Suspect]
     Active Substance: REMDESIVIR
     Indication: COVID-19 pneumonia
     Dosage: NEXT FIVE DAYS
     Route: 065
  3. REMDESIVIR [Suspect]
     Active Substance: REMDESIVIR
     Dosage: FIRST DAY
     Route: 065
  4. HEPARIN [Concomitant]
     Active Substance: HEPARIN SODIUM
  5. DEXAMETHASONE [Concomitant]
     Active Substance: DEXAMETHASONE
     Indication: COVID-19 pneumonia

REACTIONS (11)
  - Cardiac arrest [Fatal]
  - Off label use [Fatal]
  - Haemoglobin decreased [Unknown]
  - Pre-eclampsia [Unknown]
  - Bradycardia [Unknown]
  - Subcapsular hepatic haematoma [Unknown]
  - Hepatic rupture [Unknown]
  - Haemoperitoneum [Unknown]
  - Maternal exposure during pregnancy [Unknown]
  - Loss of consciousness [Unknown]
  - Hepatic enzyme increased [Recovering/Resolving]
